FAERS Safety Report 18304497 (Version 1)
Quarter: 2020Q3

REPORT INFORMATION
  Report Type: Spontaneous
  Country: US (occurrence: US)
  Receive Date: 20200923
  Receipt Date: 20200923
  Transmission Date: 20201103
  Serious: No
  Sender: FDA-Public Use
  Company Number: US-PFIZER INC-2020363721

PATIENT
  Sex: Female

DRUGS (1)
  1. ADVIL LIQUI?GELS [Suspect]
     Active Substance: IBUPROFEN
     Indication: ARTHRALGIA
     Dosage: 2?3 PILLS

REACTIONS (4)
  - Product odour abnormal [Unknown]
  - Drug ineffective [Unknown]
  - Poor quality product administered [Unknown]
  - Intentional product misuse [Unknown]
